FAERS Safety Report 8173726-4 (Version None)
Quarter: 2012Q1

REPORT INFORMATION
  Report Type: 
  Country: None (occurrence: None)
  Receive Date: 20120227
  Receipt Date: 20120213
  Transmission Date: 20120608
  Serious: Yes (Hospitalization)
  Sender: FDA-Public Use
  Company Number: US-CYPR-2011-000089

PATIENT
  Sex: Female
  Weight: 83.4619 kg

DRUGS (11)
  1. ASPIRIN [Suspect]
     Indication: CORONARY ARTERY DISEASE
     Dosage: 325 MG, QD, ORAL
     Route: 048
     Dates: start: 20060112
  2. NIASPAN [Concomitant]
  3. CLOPIDOGREL OR PLACEBO 75 MG (BRISTOL-MAYERS SQUIBB/SANOFI-AVENTIS) [Suspect]
     Indication: ANTIPLATELET THERAPY
     Dosage: 75 MG QD, ORAL
     Route: 048
     Dates: start: 20110211, end: 20111028
  4. SIMVASTATIN [Concomitant]
  5. RANOLAZINE [Concomitant]
  6. DIOVAN [Concomitant]
  7. PEPCID [Concomitant]
  8. CARVEDILOL [Concomitant]
  9. FUROSEMIDE [Concomitant]
  10. ISOSORBIDE MONONITRATE [Concomitant]
  11. CYPHER STENT [Concomitant]

REACTIONS (3)
  - IN-STENT CORONARY ARTERY RESTENOSIS [None]
  - PLATELET COUNT DECREASED [None]
  - ISCHAEMIA [None]
